FAERS Safety Report 19053733 (Version 5)
Quarter: 2022Q1

REPORT INFORMATION
  Report Type: Report from Study
  Country: DE (occurrence: DE)
  Receive Date: 20210324
  Receipt Date: 20220216
  Transmission Date: 20220423
  Serious: Yes (Hospitalization, Congenital Anomaly, Other)
  Sender: FDA-Public Use
  Company Number: NVSC2020DE194485

PATIENT
  Sex: Female
  Weight: 54 kg

DRUGS (3)
  1. GILENYA [Suspect]
     Active Substance: FINGOLIMOD HYDROCHLORIDE
     Indication: Relapsing-remitting multiple sclerosis
     Dosage: 0.5 MG, QD
     Route: 048
     Dates: start: 201409, end: 20200516
  2. BACLOFEN [Concomitant]
     Active Substance: BACLOFEN
     Indication: Muscle spasms
     Dosage: 10 MG, QD
     Route: 048
     Dates: start: 201409, end: 20200516
  3. CANNABIDIOL [Concomitant]
     Active Substance: CANNABIDIOL
     Indication: Pain
     Dosage: 2.5 MG, QD (3 X TAGLICH)
     Route: 050
     Dates: start: 201906, end: 20200516

REACTIONS (5)
  - Hypertension [Recovered/Resolved]
  - Foetal heart rate decreased [Unknown]
  - Mastitis [Recovered/Resolved]
  - Pre-eclampsia [Unknown]
  - Maternal exposure during pregnancy [Unknown]

NARRATIVE: CASE EVENT DATE: 20210113
